FAERS Safety Report 4315296-4 (Version None)
Quarter: 2004Q1

REPORT INFORMATION
  Report Type: 
  Country: None (occurrence: None)
  Receive Date: 20040309
  Receipt Date: 20040224
  Transmission Date: 20041129
  Serious: Yes (Hospitalization)
  Sender: FDA-Public Use
  Company Number: DE-SHR-04-020802

PATIENT
  Age: 47 Year
  Sex: Female
  Weight: 68.8 kg

DRUGS (10)
  1. BETASERON [Suspect]
     Indication: MULTIPLE SCLEROSIS
     Dosage: 8 MIU, EVERY 2D, SUBCUTANEOUS
     Route: 058
     Dates: start: 19971101, end: 20040205
  2. CARBAMAZEPINE [Concomitant]
  3. ATORVASTATIN CALCIUM [Concomitant]
  4. NEXIUM [Concomitant]
  5. MANINIL ^BERLIN0CHEMIE^ (GLIBENCLAMIDE) [Concomitant]
  6. URSOFALK (URSODEXOYCHOLIC ACID) [Concomitant]
  7. ESPUMISAN (DIMETICONE) [Concomitant]
  8. ALNA (TAMSULOSIN HYDROCHLORIDE) [Concomitant]
  9. CIPRAMIL (CITALOPRAM HYDROBRIOMIDE) [Concomitant]
  10. TOREM (TORASEMIDE) [Concomitant]

REACTIONS (5)
  - GAMMA-GLUTAMYLTRANSFERASE INCREASED [None]
  - HEPATIC CIRRHOSIS [None]
  - HEPATIC ENZYME INCREASED [None]
  - HEPATIC FIBROSIS [None]
  - PORTAL HYPERTENSION [None]
